FAERS Safety Report 12677271 (Version 2)
Quarter: 2018Q2

REPORT INFORMATION
  Report Type: Report from Study
  Country: US (occurrence: US)
  Receive Date: 20160823
  Receipt Date: 20180605
  Transmission Date: 20180711
  Serious: Yes (Other)
  Sender: FDA-Public Use
  Company Number: US-JNJFOC-20160815542

PATIENT

DRUGS (2)
  1. DOXORUBICIN HYDROCHLORIDE. [Suspect]
     Active Substance: DOXORUBICIN HYDROCHLORIDE
     Indication: SARCOMA METASTATIC
     Dosage: ON DAY 1 OF EACH 21-DAY CYCLE
     Route: 042
  2. OLARATUMAB [Suspect]
     Active Substance: OLARATUMAB
     Indication: SARCOMA METASTATIC
     Dosage: ON DAY 1 AND DAY 8
     Route: 042

REACTIONS (21)
  - Fatigue [Unknown]
  - Constipation [Unknown]
  - Vomiting [Unknown]
  - Diarrhoea [Unknown]
  - Febrile neutropenia [Unknown]
  - Infection [Unknown]
  - Oedema peripheral [Unknown]
  - Abdominal pain [Unknown]
  - Adverse event [Unknown]
  - Nausea [Unknown]
  - Mucosal inflammation [Unknown]
  - Anaemia [Unknown]
  - Thrombocytopenia [Unknown]
  - Musculoskeletal pain [Unknown]
  - Decreased appetite [Unknown]
  - Alopecia [Unknown]
  - Neutropenia [Unknown]
  - Pyrexia [Unknown]
  - Leukopenia [Unknown]
  - Cardiac dysfunction [Unknown]
  - Ejection fraction decreased [Unknown]
